FAERS Safety Report 20208860 (Version 1)
Quarter: 2021Q4

REPORT INFORMATION
  Report Type: Spontaneous
  Country: US (occurrence: None)
  Receive Date: 20211220
  Receipt Date: 20211220
  Transmission Date: 20220303
  Serious: Yes (Death)
  Sender: FDA-Public Use
  Company Number: None

PATIENT
  Age: 77 Year
  Sex: Female
  Weight: 48.99 kg

DRUGS (2)
  1. REGEN-COV [Suspect]
     Active Substance: CASIRIVIMAB\IMDEVIMAB
  2. REGEN [Concomitant]
     Active Substance: MINOXIDIL
     Dates: start: 20211207, end: 20211207

REACTIONS (3)
  - Infusion related reaction [None]
  - Unresponsive to stimuli [None]
  - Vital functions abnormal [None]

NARRATIVE: CASE EVENT DATE: 20211207
